FAERS Safety Report 20016777 (Version 1)
Quarter: 2021Q4

REPORT INFORMATION
  Report Type: Spontaneous
  Country: US (occurrence: None)
  Receive Date: 20211104
  Receipt Date: 20211104
  Transmission Date: 20220303
  Serious: Yes (Other)
  Sender: FDA-Public Use
  Company Number: None

PATIENT
  Age: 65 Year

DRUGS (13)
  1. HIZENTRA [Suspect]
     Active Substance: HUMAN IMMUNOGLOBULIN G
     Indication: Immunodeficiency
     Dosage: OTHER FREQUENCY : WEEKLY;?
     Route: 058
     Dates: start: 20161221
  2. Alendronate 70mg PO weekly [Concomitant]
  3. Azelastin 0.1% inhaled daily [Concomitant]
  4. Calcium 500 Vitamin D3 600mcg PO daily [Concomitant]
  5. Citalopram 20mg PO daily [Concomitant]
  6. Losartan 50mg PO daily [Concomitant]
  7. Pantoprazole 40mg PO daily [Concomitant]
  8. Patanol 0.1% ophthalmic PRN [Concomitant]
  9. Proair HFA 108mcg inhaled PRN [Concomitant]
  10. Requip 2mg PO daily [Concomitant]
  11. SImvastatin 10mg PO daily [Concomitant]
  12. Synthroid 88mcg PO daily [Concomitant]
  13. Vesicare 5mg PO daily [Concomitant]

REACTIONS (4)
  - Product quality issue [None]
  - Injection site erythema [None]
  - Injection site pruritus [None]
  - Injection site swelling [None]

NARRATIVE: CASE EVENT DATE: 20211028
